FAERS Safety Report 25051120 (Version 1)
Quarter: 2025Q1

REPORT INFORMATION
  Report Type: Spontaneous
  Country: US (occurrence: None)
  Receive Date: 20250307
  Receipt Date: 20250307
  Transmission Date: 20250409
  Serious: Yes (Hospitalization, Other)
  Sender: INCYTE
  Company Number: US-INCYTE CORPORATION-2025IN002328

PATIENT
  Weight: 47.982 kg

DRUGS (1)
  1. JAKAFI [Suspect]
     Active Substance: RUXOLITINIB
     Indication: Graft versus host disease
     Dosage: 5 MILLIGRAM, BID

REACTIONS (9)
  - Hepatic enzyme increased [Unknown]
  - Blood bilirubin increased [Unknown]
  - Cerebrovascular accident [Unknown]
  - Liver disorder [Unknown]
  - White blood cell count decreased [Unknown]
  - Gait disturbance [Unknown]
  - Infection [Unknown]
  - Red blood cell count decreased [Unknown]
  - Influenza [Unknown]
